FAERS Safety Report 9310833 (Version 1)
Quarter: 2013Q2

REPORT INFORMATION
  Report Type: Spontaneous
  Country: CH (occurrence: CH)
  Receive Date: 20130528
  Receipt Date: 20130528
  Transmission Date: 20140414
  Serious: Yes (Hospitalization, Other)
  Sender: FDA-Public Use
  Company Number: CH-009507513-1305CHE013984

PATIENT
  Age: 49 Year
  Sex: Female

DRUGS (4)
  1. REMERON [Suspect]
     Indication: PRODUCT USED FOR UNKNOWN INDICATION
     Dosage: 180 MG, ONCE; INGESTED 6 TABLETS
     Route: 048
     Dates: start: 20130331, end: 20130331
  2. VENLAFAXINE HYDROCHLORIDE [Suspect]
     Indication: PRODUCT USED FOR UNKNOWN INDICATION
     Dosage: INGESTED 7 TABLETS (DF), ONCE
     Route: 048
     Dates: start: 20130331, end: 20130331
  3. LAMOTRIGIN ACTAVIS [Suspect]
     Indication: PRODUCT USED FOR UNKNOWN INDICATION
     Dosage: 600 MG, ONCE; INGESTED UNKNOWN NUMBER OF TABLETS
     Route: 048
     Dates: start: 20130331, end: 20130331
  4. IBUPROFEN [Suspect]
     Indication: PRODUCT USED FOR UNKNOWN INDICATION
     Dosage: 4000MG, ONCE; INGESTED 20 TABLETS
     Route: 048
     Dates: start: 20130331, end: 20130331

REACTIONS (6)
  - Suicide attempt [Recovered/Resolved]
  - Coma [Recovered/Resolved]
  - Tachycardia [Recovered/Resolved]
  - Hypokalaemia [Recovered/Resolved]
  - Toxicity to various agents [None]
  - Incorrect dose administered [None]
